FAERS Safety Report 17620145 (Version 5)
Quarter: 2023Q2

REPORT INFORMATION
  Report Type: Report from Study
  Country: IT (occurrence: None)
  Receive Date: 20200403
  Receipt Date: 20230428
  Transmission Date: 20230722
  Serious: Yes (Hospitalization)
  Sender: FDA-Public Use
  Company Number: 2020SE43282

PATIENT
  Age: 72 Year
  Sex: Female

DRUGS (19)
  1. ACALABRUTINIB [Suspect]
     Active Substance: ACALABRUTINIB
     Indication: Mantle cell lymphoma
     Dosage: END OF STUDY TREATMENT
     Route: 048
     Dates: start: 20191114, end: 20200324
  2. RITUXIMAB [Suspect]
     Active Substance: RITUXIMAB
     Indication: Mantle cell lymphoma
     Dosage: 581.25MG ONCE/SINGLE ADMINISTRATION
     Route: 042
     Dates: start: 20191114, end: 20191114
  3. RITUXIMAB [Suspect]
     Active Substance: RITUXIMAB
     Indication: Mantle cell lymphoma
     Dosage: 581.25MG ONCE/SINGLE ADMINISTRATION
     Route: 042
     Dates: start: 20191219, end: 20191219
  4. RITUXIMAB [Suspect]
     Active Substance: RITUXIMAB
     Indication: Mantle cell lymphoma
     Dosage: 581.25MG ONCE/SINGLE ADMINISTRATION
     Route: 042
     Dates: start: 20200127, end: 20200127
  5. RITUXIMAB [Suspect]
     Active Substance: RITUXIMAB
     Indication: Mantle cell lymphoma
     Dosage: END OF STUDY TREATMENT581.25MG ONCE/SINGLE ADMINISTRATION
     Route: 042
     Dates: start: 20200226, end: 20200226
  6. BENDAMUSTINE [Suspect]
     Active Substance: BENDAMUSTINE
     Indication: Mantle cell lymphoma
     Dosage: 139.5MG ONCE/SINGLE ADMINISTRATION
     Route: 042
     Dates: start: 20191114, end: 20191114
  7. BENDAMUSTINE [Suspect]
     Active Substance: BENDAMUSTINE
     Indication: Mantle cell lymphoma
     Dosage: 139.5MG ONCE/SINGLE ADMINISTRATION
     Route: 042
     Dates: start: 20191115, end: 20191115
  8. BENDAMUSTINE [Suspect]
     Active Substance: BENDAMUSTINE
     Indication: Mantle cell lymphoma
     Dosage: 108.5MG ONCE/SINGLE ADMINISTRATION
     Route: 042
     Dates: start: 20191219, end: 20191219
  9. BENDAMUSTINE [Suspect]
     Active Substance: BENDAMUSTINE
     Indication: Mantle cell lymphoma
     Dosage: END OF STUDY TREATMENT108.5MG ONCE/SINGLE ADMINISTRATION
     Route: 042
     Dates: start: 20191220, end: 20191220
  10. TIROSINT [Concomitant]
     Active Substance: LEVOTHYROXINE SODIUM
     Indication: Thyroidectomy
     Route: 048
     Dates: start: 2013
  11. HYDROCHLOROTHIAZIDE [Concomitant]
     Active Substance: HYDROCHLOROTHIAZIDE
     Indication: Hypertension
     Route: 048
     Dates: start: 2018
  12. CLODRONATE DISODIUM [Concomitant]
     Active Substance: CLODRONATE DISODIUM
     Indication: Osteoporosis
     Route: 048
     Dates: start: 2018
  13. OROTRE [Concomitant]
     Indication: Osteoporosis
     Route: 048
     Dates: start: 2018
  14. ACYCLOVIR [Concomitant]
     Active Substance: ACYCLOVIR
     Indication: Infection prophylaxis
     Route: 048
     Dates: start: 20191114
  15. BACTRIM [Concomitant]
     Active Substance: SULFAMETHOXAZOLE\TRIMETHOPRIM
     Indication: Infection prophylaxis
     Dosage: 1 CAPSULE TWICE DAILY TWO TIMES A WEEK
     Route: 048
     Dates: start: 20191114
  16. NIFEREX [Concomitant]
     Indication: Anaemia
     Dosage: 1 CAPSULE DAILY
     Route: 048
     Dates: start: 20191114
  17. ZOFRAN [Concomitant]
     Active Substance: ONDANSETRON HYDROCHLORIDE
     Indication: Nausea
     Route: 048
     Dates: start: 20191114
  18. LEVOPRAID [Concomitant]
     Indication: Nausea
     Route: 048
     Dates: start: 20191212
  19. ATORVASTATIN [Concomitant]
     Active Substance: ATORVASTATIN
     Indication: Hypercholesterolaemia
     Route: 048
     Dates: start: 2018

REACTIONS (1)
  - Cerebral haemorrhage [Recovered/Resolved]

NARRATIVE: CASE EVENT DATE: 20200325
